FAERS Safety Report 5580710-3 (Version None)
Quarter: 2008Q1

REPORT INFORMATION
  Report Type: 
  Country: None (occurrence: None)
  Receive Date: 20080103
  Receipt Date: 20071226
  Transmission Date: 20080703
  Serious: Yes (Hospitalization, Other)
  Sender: FDA-Public Use
  Company Number: JP-PFIZER INC-2007094623

PATIENT
  Sex: Male
  Weight: 50 kg

DRUGS (8)
  1. ZITHROMAX [Suspect]
     Indication: PYREXIA
     Route: 048
     Dates: start: 20070917, end: 20070919
  2. ROCEPHIN [Concomitant]
     Route: 042
     Dates: start: 20070917, end: 20070921
  3. MEROPEN [Concomitant]
     Indication: PNEUMONIA
     Route: 042
     Dates: start: 20070922, end: 20070925
  4. MUCODYNE [Concomitant]
     Route: 048
  5. MAGNESIUM OXIDE [Concomitant]
     Route: 048
  6. MARZULENE S [Concomitant]
     Route: 048
  7. HOKUNALIN [Concomitant]
     Route: 062
  8. KALIMATE [Concomitant]
     Route: 048

REACTIONS (1)
  - THROMBOTIC THROMBOCYTOPENIC PURPURA [None]
